FAERS Safety Report 4964309-5 (Version None)
Quarter: 2006Q1

REPORT INFORMATION
  Report Type: 
  Country: None (occurrence: None)
  Receive Date: 20060331
  Receipt Date: 20060315
  Transmission Date: 20060701
  Serious: Yes (Other)
  Sender: FDA-Public Use
  Company Number: ENTC2006-0080

PATIENT
  Age: 62 Year
  Sex: Male

DRUGS (4)
  1. STALEVO 100 [Suspect]
     Dosage: 900 MG (150 MG, 6 IN 1 D) UNKNOWN
     Route: 065
     Dates: start: 20040101
  2. PARCOPA [Suspect]
     Indication: PARKINSON'S DISEASE
     Dosage: ORAL
     Route: 048
     Dates: start: 20050101, end: 20051101
  3. REQUIP [Suspect]
     Dosage: UNKNOWN
     Route: 065
  4. SINEMET [Suspect]
     Dosage: UNKNOWN
     Route: 065
     Dates: end: 20051101

REACTIONS (10)
  - AGGRESSION [None]
  - ASTHENIA [None]
  - CHEST PAIN [None]
  - HALLUCINATION, VISUAL [None]
  - HEAD TITUBATION [None]
  - HEADACHE [None]
  - HYPERHIDROSIS [None]
  - MUSCULOSKELETAL STIFFNESS [None]
  - PYREXIA [None]
  - RASH [None]
